FAERS Safety Report 7906391 (Version 2)
Quarter: 2013Q4

REPORT INFORMATION
  Report Type: Spontaneous
  Country: CA (occurrence: CA)
  Receive Date: 20110420
  Receipt Date: 20131210
  Transmission Date: 20140711
  Serious: Yes (Other)
  Sender: FDA-Public Use
  Company Number: CA-ROCHE-772047

PATIENT
  Age: 14 Year
  Sex: Female

DRUGS (8)
  1. NAPROXEN [Suspect]
     Indication: PRODUCT USED FOR UNKNOWN INDICATION
     Dosage: EXTENDED RELEASED TABLET
     Route: 065
  2. PREMARIN [Suspect]
     Indication: PRODUCT USED FOR UNKNOWN INDICATION
     Route: 065
  3. PREMARIN [Suspect]
     Route: 065
  4. ETHINYL ESTRADIOL [Suspect]
     Indication: PRODUCT USED FOR UNKNOWN INDICATION
     Route: 065
  5. LEVONORGESTREL [Suspect]
     Indication: PRODUCT USED FOR UNKNOWN INDICATION
     Route: 065
  6. GRAVOL [Concomitant]
  7. EMPRACET (ACETAMINOPHEN/CODEINE PHOSPHATE) [Concomitant]
  8. PREVACID [Concomitant]

REACTIONS (4)
  - Gastric ulcer [Unknown]
  - Syncope [Unknown]
  - Fall [Unknown]
  - Loss of consciousness [Unknown]
